FAERS Safety Report 8245685-7 (Version None)
Quarter: 2012Q1

REPORT INFORMATION
  Report Type: 
  Country: None (occurrence: None)
  Receive Date: 20120330
  Receipt Date: 20120321
  Transmission Date: 20120608
  Serious: No
  Sender: FDA-Public Use
  Company Number: US-BIOGENIDEC-2012BI010026

PATIENT
  Age: 49 Year
  Sex: Male

DRUGS (3)
  1. TYSABRI [Suspect]
     Indication: MULTIPLE SCLEROSIS
     Route: 042
     Dates: start: 20080609, end: 20101021
  2. GILENYA [Concomitant]
  3. TYSABRI [Suspect]
     Route: 042
     Dates: start: 20120214

REACTIONS (2)
  - ANTIBODY TEST POSITIVE [None]
  - DEPRESSION [None]
